FAERS Safety Report 7539131-6 (Version None)
Quarter: 2011Q2

REPORT INFORMATION
  Report Type: 
  Country: None (occurrence: None)
  Receive Date: 20110610
  Receipt Date: 20030113
  Transmission Date: 20111010
  Serious: Yes (Death)
  Sender: FDA-Public Use
  Company Number: PHFR2002GB04231

PATIENT
  Sex: Male

DRUGS (2)
  1. CLOZAPINE [Suspect]
     Indication: SCHIZOPHRENIA
     Dosage: 400MG DAY
     Dates: start: 20010216
  2. CITALOPRAM HYDROBROMIDE [Concomitant]
     Dosage: 10 MG/DAY

REACTIONS (3)
  - ABDOMINAL PAIN UPPER [None]
  - BLINDNESS [None]
  - PANCREATITIS [None]
